FAERS Safety Report 5245027-5 (Version None)
Quarter: 2007Q1

REPORT INFORMATION
  Report Type: 
  Country: None (occurrence: None)
  Receive Date: 20070223
  Receipt Date: 20070212
  Transmission Date: 20070707
  Serious: Yes (Life-Threatening, Other)
  Sender: FDA-Public Use
  Company Number: CH-BRISTOL-MYERS SQUIBB COMPANY-13467972

PATIENT
  Age: 47 Year
  Sex: Male

DRUGS (2)
  1. EFAVIRENZ [Suspect]
     Indication: HIV INFECTION
     Dosage: INTERRUPTED
     Route: 048
     Dates: start: 20020101
  2. KIVEXA [Concomitant]

REACTIONS (7)
  - ABDOMINAL PAIN [None]
  - CALCULUS URINARY [None]
  - CHILLS [None]
  - HYDRONEPHROSIS [None]
  - PYELONEPHRITIS [None]
  - PYREXIA [None]
  - SEPTIC SHOCK [None]
